FAERS Safety Report 8620932-8 (Version None)
Quarter: 2012Q3

REPORT INFORMATION
  Report Type: 
  Country: None (occurrence: None)
  Receive Date: 20120824
  Receipt Date: 20120820
  Transmission Date: 20120928
  Serious: No
  Sender: FDA-Public Use
  Company Number: US-PFIZER INC-2012140966

PATIENT
  Age: 65 Year
  Sex: Male
  Weight: 133 kg

DRUGS (4)
  1. BENEFIX [Suspect]
     Indication: FACTOR IX DEFICIENCY
     Dosage: 3000 IU, 2X/DAY
  2. MONONINE [Suspect]
     Indication: FACTOR IX DEFICIENCY
     Dosage: UNK
     Dates: end: 20100101
  3. BENEFIX [Suspect]
     Dosage: 6000 IU, 2X/DAY (3 DAYS)
     Dates: start: 20100101
  4. BENEFIX [Suspect]
     Dosage: 3000 IU, 2X/DAY
     Dates: start: 20100101

REACTIONS (1)
  - EPISTAXIS [None]
